FAERS Safety Report 9306076 (Version 4)
Quarter: 2013Q4

REPORT INFORMATION
  Report Type: Report from Study
  Country: BR (occurrence: BR)
  Receive Date: 20130523
  Receipt Date: 20131230
  Transmission Date: 20140711
  Serious: Yes (Other)
  Sender: FDA-Public Use
  Company Number: BR-ROCHE-1227101

PATIENT
  Age: 51 Year
  Sex: Female

DRUGS (7)
  1. XOLAIR [Suspect]
     Indication: ASTHMA
     Route: 058
     Dates: start: 201002
  2. XOLAIR [Suspect]
     Route: 058
     Dates: start: 201101
  3. XOLAIR [Suspect]
     Route: 058
     Dates: start: 20130426
  4. AMLODIPINE BESILATE [Concomitant]
  5. OMEPRAZOLE [Concomitant]
  6. TRAVOPROST [Concomitant]
  7. LUMIGAN [Concomitant]
     Route: 065

REACTIONS (14)
  - Glucose tolerance impaired [Recovered/Resolved]
  - Osteoporosis [Recovering/Resolving]
  - Diabetes mellitus [Recovering/Resolving]
  - Hypertension [Recovering/Resolving]
  - Obesity [Recovered/Resolved]
  - Asthenia [Recovered/Resolved]
  - Sneezing [Recovered/Resolved]
  - Dyspnoea [Recovering/Resolving]
  - Gastritis [Recovered/Resolved]
  - Back pain [Recovering/Resolving]
  - Rhinitis [Recovering/Resolving]
  - Blood immunoglobulin E abnormal [Recovering/Resolving]
  - Fatigue [Recovering/Resolving]
  - Asthma [Recovering/Resolving]
